FAERS Safety Report 4388940-3 (Version None)
Quarter: 2004Q3

REPORT INFORMATION
  Report Type: 
  Country: None (occurrence: None)
  Receive Date: 20040701
  Receipt Date: 20040701
  Transmission Date: 20050211
  Serious: Yes (Life-Threatening, Hospitalization)
  Sender: FDA-Public Use
  Company Number: None

PATIENT
  Age: 77 Year
  Sex: Female
  Weight: 70.7611 kg

DRUGS (5)
  1. ZOCOR [Suspect]
     Indication: RHABDOMYOLYSIS
     Dosage: 80 MG ONE DAILY ORAL
     Route: 048
     Dates: start: 20020601, end: 20040628
  2. PREVPAC [Suspect]
     Dosage: ONE DOSE TWICE DAIL ORAL
     Route: 048
     Dates: start: 20040611, end: 20040625
  3. ACTONEL [Concomitant]
  4. CALCIUM [Concomitant]
  5. ZESTRIL [Concomitant]

REACTIONS (5)
  - ASTHENIA [None]
  - CHEST PAIN [None]
  - GASTROINTESTINAL DISORDER [None]
  - HELICOBACTER PYLORI IDENTIFICATION TEST POSITIVE [None]
  - NAUSEA [None]
